FAERS Safety Report 20066019 (Version 1)
Quarter: 2021Q4

REPORT INFORMATION
  Report Type: Spontaneous
  Country: CH (occurrence: CH)
  Receive Date: 20211114
  Receipt Date: 20211114
  Transmission Date: 20220303
  Serious: Yes (Other)
  Sender: FDA-Public Use
  Company Number: CH-BAYER-2021A246238

PATIENT

DRUGS (1)
  1. EYLEA [Suspect]
     Active Substance: AFLIBERCEPT
     Indication: Neovascular age-related macular degeneration
     Dosage: UNK, Q3WK, TOTAL OF CA. 27 INJECTIONS
     Route: 031

REACTIONS (2)
  - Neovascular age-related macular degeneration [Unknown]
  - Off label use [Unknown]
